FAERS Safety Report 7945999-1 (Version None)
Quarter: 2011Q4

REPORT INFORMATION
  Report Type: 
  Country: None (occurrence: None)
  Receive Date: 20111122
  Receipt Date: 20111109
  Transmission Date: 20120403
  Serious: Yes (Life-Threatening, Hospitalization)
  Sender: FDA-Public Use
  Company Number: WAES 1109USA01224

PATIENT
  Age: 63 Year
  Sex: Male

DRUGS (5)
  1. AMARYL [Concomitant]
  2. ACTOS [Concomitant]
  3. METFORMIN HCL [Concomitant]
  4. JANUVIA [Suspect]
     Indication: TYPE 2 DIABETES MELLITUS
     Dosage: 50 MG/DAILY/PO
     Route: 048
     Dates: start: 20100818, end: 20110209
  5. CANDESARTAN CILEXETIL [Concomitant]

REACTIONS (7)
  - BLOOD ALKALINE PHOSPHATASE INCREASED [None]
  - MALAISE [None]
  - GLYCOSYLATED HAEMOGLOBIN INCREASED [None]
  - GAMMA-GLUTAMYLTRANSFERASE INCREASED [None]
  - JAUNDICE [None]
  - ALANINE AMINOTRANSFERASE INCREASED [None]
  - PANCREATIC CARCINOMA [None]
